FAERS Safety Report 8300710-X (Version None)
Quarter: 2012Q2

REPORT INFORMATION
  Report Type: 
  Country: None (occurrence: None)
  Receive Date: 20120420
  Receipt Date: 20120413
  Transmission Date: 20120825
  Serious: Yes (Hospitalization, Other)
  Sender: FDA-Public Use
  Company Number: PHHY2012NL027068

PATIENT
  Sex: Male
  Weight: 69 kg

DRUGS (13)
  1. CRESTOR [Concomitant]
     Dosage: 20 MG, QD
  2. PANTOPRAZOLE [Concomitant]
     Dosage: 40 MG, BID
  3. COLECALCIFEROL [Concomitant]
     Dosage: 1 ML,ONCE PER MONTH
     Dates: start: 20110812
  4. CALCICHEW D3 [Concomitant]
  5. ZOLEDRONOC ACID [Suspect]
     Indication: OSTEOPOROSIS
     Dosage: 5 MG/ 100 ML, YEARLY
     Route: 042
     Dates: start: 20110413
  6. AMIODARONE HCL [Concomitant]
     Dosage: 200 MG, QD
  7. COLECALCIFEROL [Concomitant]
     Dosage: 50000 IU/ML, PER TWO WEEKS
  8. PHENPROCOUMON [Concomitant]
  9. VITAMIN D [Concomitant]
  10. PROPRANOLOL [Concomitant]
     Dosage: 80 MG, QD
  11. ENEMA [Concomitant]
  12. TRAMADOL HYDROCHLORIDE/ACETAMINOPHEN [Concomitant]
  13. MOVICOLON [Concomitant]
     Dosage: 1 DF, ONCE OR TWICE DAILY

REACTIONS (7)
  - BACK PAIN [None]
  - PERONEAL NERVE PALSY [None]
  - WOUND [None]
  - MEMORY IMPAIRMENT [None]
  - BLOOD CALCIUM DECREASED [None]
  - RENAL FAILURE [None]
  - CARDIAC FAILURE [None]
